FAERS Safety Report 13659009 (Version 1)
Quarter: 2017Q2

REPORT INFORMATION
  Report Type: Report from Study
  Country: CN (occurrence: CN)
  Receive Date: 20170616
  Receipt Date: 20170616
  Transmission Date: 20170830
  Serious: Yes (Other)
  Sender: FDA-Public Use
  Company Number: CN-ASTELLAS-2017US023756

PATIENT
  Age: 77 Year
  Sex: Male

DRUGS (1)
  1. ERLOTINIB [Suspect]
     Active Substance: ERLOTINIB
     Indication: NON-SMALL CELL LUNG CANCER
     Route: 048
     Dates: start: 20121231

REACTIONS (7)
  - Heart rate decreased [Unknown]
  - Syncope [Unknown]
  - Dizziness [Unknown]
  - Hepatic function abnormal [Unknown]
  - Coma [Unknown]
  - Cardiac disorder [Unknown]
  - Decreased appetite [Unknown]

NARRATIVE: CASE EVENT DATE: 20170430
